FAERS Safety Report 12186956 (Version 1)
Quarter: 2016Q1

REPORT INFORMATION
  Report Type: Spontaneous
  Country: RO (occurrence: RO)
  Receive Date: 20160317
  Receipt Date: 20160317
  Transmission Date: 20160526
  Serious: Yes (Other)
  Sender: FDA-Public Use
  Company Number: PHHY2016RO033896

PATIENT
  Age: 74 Year
  Sex: Male
  Weight: 77 kg

DRUGS (1)
  1. ULTIBRO BREEZHALER [Suspect]
     Active Substance: GLYCOPYRRONIUM\INDACATEROL
     Indication: CHRONIC OBSTRUCTIVE PULMONARY DISEASE
     Dosage: 2 DF, QD
     Route: 055
     Dates: start: 20160304, end: 20160306

REACTIONS (3)
  - Hyperhidrosis [Recovering/Resolving]
  - Bronchospasm paradoxical [Recovered/Resolved]
  - Tachypnoea [Recovering/Resolving]

NARRATIVE: CASE EVENT DATE: 20160304
